FAERS Safety Report 5351271-9 (Version None)
Quarter: 2007Q2

REPORT INFORMATION
  Report Type: 
  Country: None (occurrence: None)
  Receive Date: 20070608
  Receipt Date: 20070530
  Transmission Date: 20071010
  Serious: Yes (Hospitalization, Other)
  Sender: FDA-Public Use
  Company Number: FR-PFIZER INC-2007044472

PATIENT
  Age: 16 Year
  Sex: Male

DRUGS (3)
  1. ZOLOFT [Suspect]
     Indication: DEPRESSION
  2. ALCOHOL [Suspect]
  3. CYAMEMAZINE [Concomitant]

REACTIONS (2)
  - AGITATION [None]
  - POLYDIPSIA [None]
